FAERS Safety Report 13878158 (Version 2)
Quarter: 2018Q3

REPORT INFORMATION
  Report Type: Report from Study
  Country: US (occurrence: US)
  Receive Date: 20170817
  Receipt Date: 20180831
  Transmission Date: 20181010
  Serious: Yes (Other)
  Sender: FDA-Public Use
  Company Number: US-PFIZER INC-2017282710

PATIENT
  Sex: Female

DRUGS (1)
  1. PACLITAXEL. [Suspect]
     Active Substance: PACLITAXEL
     Indication: CERVIX CARCINOMA RECURRENT
     Dosage: 80 MG/M2, CYCLIC (DAY 1, 8, AND 15 WITHOUT DAY 22) REPEATED EVERY 28 DAYS
     Route: 042

REACTIONS (1)
  - Transaminases increased [Unknown]
